FAERS Safety Report 4761710-X (Version None)
Quarter: 2005Q3

REPORT INFORMATION
  Report Type: 
  Country: None (occurrence: None)
  Receive Date: 20050831
  Receipt Date: 20050722
  Transmission Date: 20060218
  Serious: No
  Sender: FDA-Public Use
  Company Number: PHEH2005US08203

PATIENT
  Age: 61 Year
  Sex: Female

DRUGS (1)
  1. ENABLEX [Suspect]
     Indication: HYPERTONIC BLADDER
     Dosage: 7.5 MG, QD
     Dates: start: 20050501, end: 20050701

REACTIONS (6)
  - DERMATITIS EXFOLIATIVE [None]
  - DRY SKIN [None]
  - FUNGAL INFECTION [None]
  - METRORRHAGIA [None]
  - PRURITUS [None]
  - SKIN BURNING SENSATION [None]
